FAERS Safety Report 6432983-2 (Version None)
Quarter: 2009Q4

REPORT INFORMATION
  Report Type: 
  Country: None (occurrence: None)
  Receive Date: 20091109
  Receipt Date: 20091030
  Transmission Date: 20100525
  Serious: Yes (Other)
  Sender: FDA-Public Use
  Company Number: GB-ABBOTT-09P-167-0605813-00

PATIENT
  Sex: Female

DRUGS (2)
  1. HUMIRA [Suspect]
     Indication: ANKYLOSING SPONDYLITIS
  2. STEROIDS [Concomitant]
     Indication: ILL-DEFINED DISORDER
     Route: 030

REACTIONS (4)
  - ARTHRALGIA [None]
  - ENDOMETRIOSIS [None]
  - IRITIS [None]
  - OEDEMA PERIPHERAL [None]
